FAERS Safety Report 8393284-9 (Version None)
Quarter: 2012Q2

REPORT INFORMATION
  Report Type: 
  Country: None (occurrence: None)
  Receive Date: 20120529
  Receipt Date: 20120517
  Transmission Date: 20120825
  Serious: Yes (Life-Threatening)
  Sender: FDA-Public Use
  Company Number: CA-COVIDIEN/TYCO HEALTHCARE/MALLINCKRODT-T201201762

PATIENT
  Age: 49 Year
  Sex: Female

DRUGS (5)
  1. METHYLENE BLUE [Suspect]
  2. PAROXETINE [Suspect]
  3. MEPERIDINE HCL [Suspect]
  4. FENTANYL CITRATE [Suspect]
     Indication: ANAESTHESIA
     Dosage: UNK
     Route: 042
  5. FLUVOXAMINE MALEATE [Suspect]

REACTIONS (2)
  - DRUG INTERACTION [None]
  - SEROTONIN SYNDROME [None]
